FAERS Safety Report 4866651-5 (Version None)
Quarter: 2005Q4

REPORT INFORMATION
  Report Type: 
  Country: None (occurrence: None)
  Receive Date: 20051222
  Receipt Date: 20051214
  Transmission Date: 20060501
  Serious: Yes (Hospitalization)
  Sender: FDA-Public Use
  Company Number: 2005168047

PATIENT
  Age: 28 Year
  Sex: Female

DRUGS (1)
  1. DOSTINEX [Suspect]
     Indication: SUPPRESSED LACTATION
     Dosage: ORAL
     Route: 048
     Dates: start: 20000625

REACTIONS (3)
  - DEREALISATION [None]
  - HYPERVENTILATION [None]
  - PANIC REACTION [None]
